FAERS Safety Report 6337948-7 (Version None)
Quarter: 2009Q3

REPORT INFORMATION
  Report Type: 
  Country: None (occurrence: None)
  Receive Date: 20090902
  Receipt Date: 20090826
  Transmission Date: 20100115
  Serious: Yes (Hospitalization, Other)
  Sender: FDA-Public Use
  Company Number: US-CELGENEUS-163-21880-09071067

PATIENT
  Sex: Female

DRUGS (4)
  1. REVLIMID [Suspect]
     Route: 048
     Dates: start: 20080101
  2. REVLIMID [Suspect]
     Route: 048
     Dates: start: 20080401, end: 20081201
  3. REVLIMID [Suspect]
     Route: 048
     Dates: start: 20090101
  4. REVLIMID [Suspect]
     Route: 048
     Dates: start: 20090201

REACTIONS (3)
  - ARTHRITIS INFECTIVE [None]
  - PARAGANGLION NEOPLASM [None]
  - WHITE BLOOD CELL COUNT INCREASED [None]
